FAERS Safety Report 9153382 (Version 1)
Quarter: 2013Q1

REPORT INFORMATION
  Report Type: Spontaneous
  Country: US (occurrence: US)
  Receive Date: 20130311
  Receipt Date: 20130311
  Transmission Date: 20140127
  Serious: Yes (Hospitalization, Other)
  Sender: FDA-Public Use
  Company Number: US-JNJFOC-20130215871

PATIENT
  Sex: Female
  Weight: 68.04 kg

DRUGS (3)
  1. UNSPECIFIED FENTANYL TRANSDERMAL SYSTEM [Suspect]
     Indication: BACK PAIN
     Route: 062
  2. DURAGESIC [Suspect]
     Indication: BACK PAIN
     Route: 062
     Dates: end: 2009
  3. DURAGESIC [Suspect]
     Indication: BACK PAIN
     Route: 062
     Dates: start: 2009

REACTIONS (16)
  - Dependence [Not Recovered/Not Resolved]
  - Back pain [Unknown]
  - Road traffic accident [Recovered/Resolved]
  - Fall [Recovered/Resolved]
  - Hip fracture [Recovered/Resolved]
  - Femur fracture [Recovered/Resolved]
  - Implant site reaction [Recovered/Resolved]
  - Drug ineffective [Unknown]
  - Product quality issue [Unknown]
  - Nervousness [Not Recovered/Not Resolved]
  - Anxiety [Not Recovered/Not Resolved]
  - Insomnia [Not Recovered/Not Resolved]
  - Restless legs syndrome [Not Recovered/Not Resolved]
  - Pain [Unknown]
  - Product quality issue [Unknown]
  - Product quality issue [Unknown]
